FAERS Safety Report 25373514 (Version 1)
Quarter: 2025Q2

REPORT INFORMATION
  Report Type: Spontaneous
  Country: FR (occurrence: FR)
  Receive Date: 20250529
  Receipt Date: 20250529
  Transmission Date: 20250716
  Serious: Yes (Other)
  Sender: DR REDDYS
  Company Number: None

PATIENT
  Age: 65 Year
  Sex: Male
  Weight: 69.5 kg

DRUGS (2)
  1. CYCLOPHOSPHAMIDE [Suspect]
     Active Substance: CYCLOPHOSPHAMIDE
     Indication: Carcinoid tumour
     Dosage: 1G ON 1H EVERY 3 WEEKS
     Route: 042
     Dates: start: 20220420, end: 20220810
  2. DOXORUBICIN [Suspect]
     Active Substance: DOXORUBICIN
     Indication: Carcinoid tumour
     Dosage: 65 MG FOR 15 MINUTES EVERY 3 SEMESTERS
     Route: 042
     Dates: start: 20220420, end: 20220810

REACTIONS (1)
  - Ejection fraction decreased [Not Recovered/Not Resolved]

NARRATIVE: CASE EVENT DATE: 20250219
